FAERS Safety Report 9061431 (Version 1)
Quarter: 2013Q1

REPORT INFORMATION
  Report Type: Spontaneous
  Country: US (occurrence: US)
  Receive Date: 20130204
  Receipt Date: 20130204
  Transmission Date: 20140127
  Serious: No
  Sender: FDA-Public Use
  Company Number: US-TEVA-382069USA

PATIENT
  Age: 49 None
  Sex: Female

DRUGS (13)
  1. ACTIQ [Suspect]
     Indication: FIBROMYALGIA
     Dates: start: 20090121
  2. ACTIQ [Suspect]
     Indication: NEURALGIA
  3. DILAUDID [Concomitant]
     Indication: PAIN
     Dosage: 1-2 TABS NO MORE THAN 6/DAY
     Route: 048
  4. VALIUM [Concomitant]
     Indication: PAIN
     Dosage: 10 MILLIGRAM DAILY;
     Route: 048
  5. ZOLOFT [Concomitant]
     Dosage: 50 MILLIGRAM DAILY;
     Route: 048
  6. NEURONTIN [Concomitant]
     Indication: NEURALGIA
     Route: 048
  7. ZETIA [Concomitant]
     Indication: BLOOD CHOLESTEROL INCREASED
     Dosage: 10 MILLIGRAM DAILY;
     Route: 048
  8. DIOVAN [Concomitant]
     Indication: HYPERTENSION
     Route: 048
  9. ESTRATEST [Concomitant]
     Indication: HORMONE REPLACEMENT THERAPY
     Route: 048
  10. BYSTOLIC [Concomitant]
     Indication: HYPERTENSION
     Dosage: 10 MILLIGRAM DAILY;
     Route: 048
  11. NEXIUM [Concomitant]
     Indication: GASTROOESOPHAGEAL REFLUX DISEASE
     Dosage: 40 MILLIGRAM DAILY;
     Route: 048
  12. SINGULAIR [Concomitant]
     Indication: ASTHMA
     Dosage: 10 MILLIGRAM DAILY;
     Route: 048
  13. LOVAZA [Concomitant]
     Indication: BLOOD CHOLESTEROL INCREASED
     Route: 048

REACTIONS (1)
  - Photopsia [Not Recovered/Not Resolved]
